FAERS Safety Report 8817142 (Version 1)
Quarter: 2012Q4

REPORT INFORMATION
  Report Type: Spontaneous
  Country: US (occurrence: None)
  Receive Date: 20121003
  Receipt Date: 20121003
  Transmission Date: 20130627
  Serious: Yes (Other)
  Sender: FDA-Public Use
  Company Number: None

PATIENT
  Age: 88 Year
  Sex: Female
  Weight: 48.54 kg

DRUGS (2)
  1. COLCRYS [Suspect]
     Indication: GOUT
     Dosage: First day 3 tab. (0.6), There after 2 tab. daily.  Take until resolved per doctor
     Route: 048
     Dates: start: 20120730
  2. COLCRYS [Suspect]
     Indication: GOUT
     Dates: start: 20120731

REACTIONS (1)
  - Diarrhoea [None]
